FAERS Safety Report 4710680-9 (Version None)
Quarter: 2005Q3

REPORT INFORMATION
  Report Type: 
  Country: None (occurrence: None)
  Receive Date: 20050707
  Receipt Date: 20050616
  Transmission Date: 20060218
  Serious: Yes (Death)
  Sender: FDA-Public Use
  Company Number: CA_050207756

PATIENT
  Age: 45 Year
  Sex: Female
  Weight: 102 kg

DRUGS (2)
  1. ZYPREXA [Suspect]
     Indication: SCHIZOPHRENIA
     Dosage: 20MG/2 DAY
  2. PAROXETINE HCL [Concomitant]

REACTIONS (3)
  - ARRHYTHMIA [None]
  - FALL [None]
  - PRESCRIBED OVERDOSE [None]
